FAERS Safety Report 6424473-8 (Version None)
Quarter: 2009Q4

REPORT INFORMATION
  Report Type: 
  Country: None (occurrence: None)
  Receive Date: 20091103
  Receipt Date: 20091030
  Transmission Date: 20100525
  Serious: Yes (Other)
  Sender: FDA-Public Use
  Company Number: IN-BRISTOL-MYERS SQUIBB COMPANY-14839336

PATIENT
  Age: 34 Year
  Sex: Male

DRUGS (2)
  1. MAXIPIME [Suspect]
     Indication: LOWER RESPIRATORY TRACT INFECTION
     Route: 042
  2. MAXIPIME [Suspect]
     Indication: PNEUMONIA ASPIRATION
     Route: 042

REACTIONS (2)
  - ACTIVATED PARTIAL THROMBOPLASTIN TIME PROLONGED [None]
  - HAEMATURIA [None]
